FAERS Safety Report 6325988-3 (Version None)
Quarter: 2009Q3

REPORT INFORMATION
  Report Type: 
  Country: None (occurrence: None)
  Receive Date: 20090824
  Receipt Date: 20090813
  Transmission Date: 20100115
  Serious: Yes (Other)
  Sender: FDA-Public Use
  Company Number: US-ELI_LILLY_AND_COMPANY-US200908003430

PATIENT
  Age: 74 Year
  Sex: Female

DRUGS (5)
  1. ALIMTA [Suspect]
     Dosage: 500 MG/M2, UNK
     Route: 042
     Dates: start: 20090805, end: 20090805
  2. CARBOPLATIN [Concomitant]
     Dosage: 5 D/F, UNK
     Route: 042
     Dates: start: 20090805, end: 20090805
  3. VITAMIN B-12 [Concomitant]
     Dosage: 1000 UG, UNK
     Dates: start: 20090805, end: 20090805
  4. DEXAMETHASONE [Concomitant]
     Dosage: 12 MG, UNK
     Dates: start: 20090805, end: 20090805
  5. ZOFRAN [Concomitant]
     Dosage: 16 MG, UNK
     Dates: start: 20090805, end: 20090805

REACTIONS (5)
  - BLOOD PRESSURE INCREASED [None]
  - DYSPNOEA [None]
  - FEELING HOT [None]
  - NAUSEA [None]
  - TACHYCARDIA [None]
